FAERS Safety Report 11590544 (Version 3)
Quarter: 2015Q4

REPORT INFORMATION
  Report Type: Spontaneous
  Country: US (occurrence: US)
  Receive Date: 20151002
  Receipt Date: 20151028
  Transmission Date: 20160304
  Serious: Yes (Death, Hospitalization, Other)
  Sender: FDA-Public Use
  Company Number: US-GLAXOSMITHKLINE-US2015139846

PATIENT
  Sex: Male
  Weight: 72.56 kg

DRUGS (15)
  1. COREG [Suspect]
     Active Substance: CARVEDILOL
     Indication: PRODUCT USED FOR UNKNOWN INDICATION
     Dosage: 3.125 MG, BID
     Route: 048
     Dates: start: 20140513, end: 20150924
  2. METFORMIN [Concomitant]
     Active Substance: METFORMIN HYDROCHLORIDE
  3. XARELTO [Concomitant]
     Active Substance: RIVAROXABAN
  4. LOSARTAN. [Concomitant]
     Active Substance: LOSARTAN
  5. ZOCOR [Concomitant]
     Active Substance: SIMVASTATIN
  6. CHLORTHALIDONE. [Concomitant]
     Active Substance: CHLORTHALIDONE
  7. LASIX [Concomitant]
     Active Substance: FUROSEMIDE
  8. KLOR-CON [Concomitant]
     Active Substance: POTASSIUM CHLORIDE
  9. PROTONIX [Concomitant]
     Active Substance: PANTOPRAZOLE SODIUM
  10. PLAVIX [Concomitant]
     Active Substance: CLOPIDOGREL BISULFATE
  11. NOVOLOG [Concomitant]
     Active Substance: INSULIN ASPART
  12. CELEXIA [Concomitant]
  13. LINZESS [Concomitant]
     Active Substance: LINACLOTIDE
  14. LANTUS [Concomitant]
     Active Substance: INSULIN GLARGINE
  15. NASONEX [Concomitant]
     Active Substance: MOMETASONE FUROATE

REACTIONS (2)
  - Malignant neoplasm progression [Fatal]
  - Hepatic cancer metastatic [Fatal]
